FAERS Safety Report 4549104-3 (Version None)
Quarter: 2005Q1

REPORT INFORMATION
  Report Type: 
  Country: None (occurrence: None)
  Receive Date: 20041227
  Receipt Date: 20040920
  Transmission Date: 20050727
  Serious: No
  Sender: FDA-Public Use
  Company Number: 04P-163-0273734-00

PATIENT
  Age: 37 Year
  Sex: Female

DRUGS (7)
  1. HUMIRA [Suspect]
     Indication: RHEUMATOID ARTHRITIS
     Dosage: 40 MG, 1 IN 2 WK, SUBCUTANEOUS
     Route: 058
     Dates: start: 20040725
  2. METHOTREXATE SODIUM [Concomitant]
  3. PANTOPRAZOLE [Concomitant]
  4. CO-DIOVAN [Concomitant]
  5. FOLIC ACID [Concomitant]
  6. MINOCYCLINE HCL [Concomitant]
  7. ROFECOXIB [Concomitant]

REACTIONS (1)
  - INJECTION SITE IRRITATION [None]
